FAERS Safety Report 8503899-2 (Version None)
Quarter: 2012Q3

REPORT INFORMATION
  Report Type: 
  Country: None (occurrence: None)
  Receive Date: 20120711
  Receipt Date: 20120630
  Transmission Date: 20120928
  Serious: Yes (Other)
  Sender: FDA-Public Use
  Company Number: AT-BRISTOL-MYERS SQUIBB COMPANY-16735672

PATIENT
  Age: 42 Year
  Sex: Female

DRUGS (1)
  1. DASATINIB [Suspect]
     Indication: MYELOPROLIFERATIVE DISORDER

REACTIONS (1)
  - HAEMATOTOXICITY [None]
